FAERS Safety Report 8031633-1 (Version None)
Quarter: 2012Q1

REPORT INFORMATION
  Report Type: 
  Country: None (occurrence: None)
  Receive Date: 20120109
  Receipt Date: 20120102
  Transmission Date: 20120608
  Serious: Yes (Hospitalization)
  Sender: FDA-Public Use
  Company Number: PHHY2012ES001356

PATIENT
  Age: 74 Year
  Sex: Female
  Weight: 95 kg

DRUGS (3)
  1. IRINOTECAN HCL [Concomitant]
  2. FLUOROURACIL [Suspect]
     Indication: COLON CANCER
     Dosage: UNK
     Route: 042
     Dates: start: 20101207
  3. AVASTIN [Suspect]
     Indication: COLON CANCER
     Dosage: UNK
     Route: 042
     Dates: start: 20101207, end: 20110118

REACTIONS (1)
  - PULMONARY EMBOLISM [None]
